FAERS Safety Report 17274598 (Version 5)
Quarter: 2020Q2

REPORT INFORMATION
  Report Type: Report from Study
  Country: PT (occurrence: PT)
  Receive Date: 20200115
  Receipt Date: 20200402
  Transmission Date: 20200713
  Serious: Yes (Hospitalization)
  Sender: FDA-Public Use
  Company Number: PT-CELLTRION INC.-2020PT017672

PATIENT

DRUGS (42)
  1. REMSIMA [Suspect]
     Active Substance: INFLIXIMAB
     Indication: CROHN^S DISEASE
     Dosage: 250 MG
     Route: 042
     Dates: start: 20170518
  2. REMSIMA [Suspect]
     Active Substance: INFLIXIMAB
     Dosage: 250 MG
     Route: 042
     Dates: start: 20170914
  3. REMSIMA [Suspect]
     Active Substance: INFLIXIMAB
     Dosage: 245 MG
     Route: 042
     Dates: start: 20171115, end: 20171115
  4. REMSIMA [Suspect]
     Active Substance: INFLIXIMAB
     Dosage: 250 MG
     Route: 042
     Dates: start: 20171228, end: 20171228
  5. REMSIMA [Suspect]
     Active Substance: INFLIXIMAB
     Dosage: 240 MG
     Route: 042
     Dates: start: 20180206, end: 20180206
  6. REMSIMA [Suspect]
     Active Substance: INFLIXIMAB
     Dosage: 250 MG
     Route: 042
     Dates: start: 20180320, end: 20180320
  7. REMSIMA [Suspect]
     Active Substance: INFLIXIMAB
     Dosage: 510 MG
     Route: 042
     Dates: start: 20190107, end: 20190107
  8. REMSIMA [Suspect]
     Active Substance: INFLIXIMAB
     Dosage: 480 MG
     Route: 042
     Dates: start: 20190730
  9. INDACATEROL [Concomitant]
     Active Substance: INDACATEROL
     Indication: SYNCOPE
     Dosage: 300 MICROGRAM ONCE A DAY
     Dates: start: 20191126, end: 20191205
  10. PANTOPRAZOLE [Concomitant]
     Active Substance: PANTOPRAZOLE
     Indication: SYNCOPE
     Dosage: 40 MG ONCE A DAY
     Route: 048
     Dates: start: 20191125, end: 20191205
  11. REMSIMA [Suspect]
     Active Substance: INFLIXIMAB
     Dosage: 250 MG
     Route: 042
     Dates: start: 20180814
  12. BISOPROLOL [Concomitant]
     Active Substance: BISOPROLOL
     Indication: CARDIOVASCULAR DISORDER
     Dosage: 2.5 MG ONCE A DAY
     Route: 048
     Dates: start: 201911
  13. GLUCOSE [Concomitant]
     Active Substance: DEXTROSE
     Indication: SYNCOPE
     Dosage: 1 L, PRN
     Route: 042
     Dates: start: 20191125, end: 20191126
  14. IBUPROFEN. [Concomitant]
     Active Substance: IBUPROFEN
     Indication: HEADACHE
     Dosage: 600 MG, PRN
     Route: 048
     Dates: start: 20181028
  15. REMSIMA [Suspect]
     Active Substance: INFLIXIMAB
     Dosage: 240 MG
     Route: 042
     Dates: start: 20180515
  16. REMSIMA [Suspect]
     Active Substance: INFLIXIMAB
     Dosage: 250 MG
     Route: 042
     Dates: start: 20180703, end: 20180703
  17. BISOPROLOL [Concomitant]
     Active Substance: BISOPROLOL
     Indication: SYNCOPE
     Dosage: 2.5 MG ONCE A DAY
     Route: 048
     Dates: start: 20191125, end: 20191205
  18. PAROXETINE. [Concomitant]
     Active Substance: PAROXETINE
     Indication: SYNCOPE
     Dosage: 20 MG ONCE A DAY
     Route: 048
     Dates: start: 20191125
  19. TRAZODONE [Concomitant]
     Active Substance: TRAZODONE HYDROCHLORIDE
     Indication: SYNCOPE
     Dosage: 150 MG ONCE A DAY
     Route: 048
     Dates: start: 20191125, end: 20191126
  20. REMSIMA [Suspect]
     Active Substance: INFLIXIMAB
     Dosage: 250 MG
     Route: 042
     Dates: start: 20180927
  21. PANTOPRAZOLE [Concomitant]
     Active Substance: PANTOPRAZOLE
     Indication: INFLAMMATORY BOWEL DISEASE
     Dosage: 20 MG ONCE A DAY
     Route: 048
     Dates: start: 2009, end: 20191125
  22. SODIUM ENOXAPARINE [Concomitant]
     Indication: SYNCOPE
     Dosage: 40 MG ONCE A DAY
     Route: 058
     Dates: start: 20191125, end: 20191126
  23. REMSIMA [Suspect]
     Active Substance: INFLIXIMAB
     Dosage: 245 MG
     Route: 042
     Dates: start: 20170720
  24. REMSIMA [Suspect]
     Active Substance: INFLIXIMAB
     Dosage: 500 MG
     Route: 042
     Dates: start: 20190219, end: 20190219
  25. REMSIMA [Suspect]
     Active Substance: INFLIXIMAB
     Dosage: 500 MG
     Route: 042
     Dates: start: 20190409, end: 20190409
  26. REMSIMA [Suspect]
     Active Substance: INFLIXIMAB
     Dosage: 480 MG
     Route: 042
     Dates: start: 20190606, end: 20190606
  27. REMSIMA [Suspect]
     Active Substance: INFLIXIMAB
     Dosage: UNK
     Route: 042
     Dates: start: 20200213
  28. ALPRAZOLAM. [Concomitant]
     Active Substance: ALPRAZOLAM
     Indication: ANXIETY
     Dosage: 1 MG ONCE A DAY
     Route: 048
     Dates: start: 201606
  29. ATORVASTATINE [ATORVASTATIN] [Concomitant]
     Active Substance: ATORVASTATIN
     Indication: SYNCOPE
     Dosage: 20 MG ONCE A DAY
     Route: 048
     Dates: start: 20191204
  30. BUDESONIDE. [Concomitant]
     Active Substance: BUDESONIDE
     Indication: SYNCOPE
     Dosage: 1 MG, BID
     Dates: start: 20191125, end: 20191205
  31. IPRATROPIUM BROMIDE. [Concomitant]
     Active Substance: IPRATROPIUM BROMIDE
     Indication: SYNCOPE
     Dosage: 500 MICROGRAM, BID
     Dates: start: 20191125, end: 20191205
  32. OXAZEPAM. [Concomitant]
     Active Substance: OXAZEPAM
     Indication: ANXIETY
     Dosage: 50 MG ONCE A DAY
     Route: 048
     Dates: start: 201702
  33. PANTOPRAZOLE [Concomitant]
     Active Substance: PANTOPRAZOLE
     Dosage: 20 MG ONCE
     Route: 048
     Dates: start: 20191206
  34. ZOLPIDEM [Concomitant]
     Active Substance: ZOLPIDEM TARTRATE
     Indication: SYNCOPE
     Dosage: 10 MG ONCE A DAY
     Route: 048
     Dates: start: 20191128
  35. REMSIMA [Suspect]
     Active Substance: INFLIXIMAB
     Dosage: 500 MG
     Route: 042
     Dates: start: 20181121
  36. REMSIMA [Suspect]
     Active Substance: INFLIXIMAB
     Dosage: 480 MG
     Route: 042
     Dates: start: 20190916, end: 20190916
  37. REMSIMA [Suspect]
     Active Substance: INFLIXIMAB
     Dosage: UNK
     Route: 042
     Dates: start: 20191121
  38. CLOPIDOGREL [Concomitant]
     Active Substance: CLOPIDOGREL BISULFATE
     Indication: SYNCOPE
     Dosage: 75 MG ONCE A DAY
     Route: 048
     Dates: start: 20191204
  39. ZOLMITRIPTAN. [Concomitant]
     Active Substance: ZOLMITRIPTAN
     Indication: HEADACHE
     Dosage: 2.5 MG, PRN
     Route: 048
     Dates: start: 20181028
  40. REMSIMA [Suspect]
     Active Substance: INFLIXIMAB
     Dosage: UNK
     Dates: start: 202001
  41. GLUCOSE + SODIUM CHLORIDE [Concomitant]
     Active Substance: DEXTROSE\SODIUM CHLORIDE
     Indication: SYNCOPE
     Dosage: 1 L, PRN
     Route: 042
     Dates: start: 20191126, end: 20191126
  42. PARACETAMOL [Concomitant]
     Active Substance: ACETAMINOPHEN
     Indication: HEADACHE
     Dosage: AS NEEDED
     Route: 048
     Dates: start: 20181028

REACTIONS (1)
  - Gait disturbance [Recovered/Resolved]

NARRATIVE: CASE EVENT DATE: 20191205
